FAERS Safety Report 21164062 (Version 3)
Quarter: 2022Q3

REPORT INFORMATION
  Report Type: Spontaneous
  Country: US (occurrence: US)
  Receive Date: 20220803
  Receipt Date: 20220929
  Transmission Date: 20221027
  Serious: No
  Sender: FDA-Public Use
  Company Number: US-LEO Pharma-344344

PATIENT
  Age: 58 Year
  Sex: Female

DRUGS (4)
  1. opzelura cream [Concomitant]
     Indication: Dermatitis atopic
  2. ADBRY [Suspect]
     Active Substance: TRALOKINUMAB-LDRM
     Indication: Product used for unknown indication
     Dosage: INJECTED LOADING DOSE (4 SYRINGES)
     Route: 058
     Dates: start: 20220713
  3. ADBRY [Suspect]
     Active Substance: TRALOKINUMAB-LDRM
     Indication: Product used for unknown indication
     Dosage: INJECTED LOADING DOSE (4 SYRINGES)
     Route: 058
     Dates: start: 20220713
  4. CLOBETASOL [Concomitant]
     Active Substance: CLOBETASOL
     Indication: Dermatitis atopic

REACTIONS (2)
  - Injection site erythema [Unknown]
  - Injection site rash [Not Recovered/Not Resolved]

NARRATIVE: CASE EVENT DATE: 20220713
